FAERS Safety Report 5299903-8 (Version None)
Quarter: 2007Q2

REPORT INFORMATION
  Report Type: 
  Country: None (occurrence: None)
  Receive Date: 20070417
  Receipt Date: 20070405
  Transmission Date: 20071010
  Serious: Yes (Hospitalization, Disabling, Other)
  Sender: FDA-Public Use
  Company Number: US-PFIZER INC-2007027845

PATIENT
  Sex: Female
  Weight: 86.2 kg

DRUGS (2)
  1. BEXTRA [Suspect]
     Indication: EXOSTOSIS
  2. BEXTRA [Suspect]
     Indication: PAIN

REACTIONS (1)
  - CEREBROVASCULAR ACCIDENT [None]
